FAERS Safety Report 12825026 (Version 1)
Quarter: 2016Q4

REPORT INFORMATION
  Report Type: Report from Study
  Country: IT (occurrence: IT)
  Receive Date: 20161007
  Receipt Date: 20161007
  Transmission Date: 20170207
  Serious: Yes (Other)
  Sender: FDA-Public Use
  Company Number: IT-BRISTOL-MYERS SQUIBB COMPANY-BMS-2016-082701

PATIENT
  Age: 76 Year
  Sex: Female

DRUGS (1)
  1. NIVOLUMAB [Suspect]
     Active Substance: NIVOLUMAB
     Indication: NON-SMALL CELL LUNG CANCER
     Dosage: 3 MG/KG, UNK
     Route: 042

REACTIONS (7)
  - Neuropathy peripheral [Unknown]
  - Pain in extremity [Unknown]
  - Sciatica [Unknown]
  - Gait disturbance [Unknown]
  - Cachexia [Unknown]
  - Diarrhoea [Unknown]
  - Oral fungal infection [Unknown]

NARRATIVE: CASE EVENT DATE: 20151021
